FAERS Safety Report 20457961 (Version 3)
Quarter: 2022Q1

REPORT INFORMATION
  Report Type: Report from Study
  Country: CA (occurrence: CA)
  Receive Date: 20220211
  Receipt Date: 20220223
  Transmission Date: 20220424
  Serious: Yes (Other)
  Sender: FDA-Public Use
  Company Number: CA-SAMSUNG BIOEPIS-SB-2022-03116

PATIENT
  Age: 33 Year
  Sex: Male
  Weight: 86 kg

DRUGS (1)
  1. RENFLEXIS [Suspect]
     Active Substance: INFLIXIMAB-ABDA
     Indication: Colitis
     Dosage: VIAL
     Route: 042
     Dates: start: 20200730

REACTIONS (3)
  - Hypoaesthesia [Unknown]
  - Poor venous access [Unknown]
  - Product use in unapproved indication [Unknown]

NARRATIVE: CASE EVENT DATE: 20220202
